FAERS Safety Report 9438991 (Version 2)
Quarter: 2013Q3

REPORT INFORMATION
  Report Type: Spontaneous
  Country: US (occurrence: US)
  Receive Date: 20130802
  Receipt Date: 20130829
  Transmission Date: 20140515
  Serious: No
  Sender: FDA-Public Use
  Company Number: US-009507513-1307USA016574

PATIENT
  Age: 18 Year
  Sex: Female
  Weight: 48.98 kg

DRUGS (1)
  1. IMPLANON [Suspect]
     Indication: CONTRACEPTION
     Dosage: 1 ROD,UNK
     Route: 059
     Dates: start: 20130606, end: 20130716

REACTIONS (2)
  - Pain in extremity [Unknown]
  - Device dislocation [Recovered/Resolved]
